FAERS Safety Report 10330817 (Version 2)
Quarter: 2014Q3

REPORT INFORMATION
  Report Type: Spontaneous
  Country: US (occurrence: None)
  Receive Date: 20140718
  Receipt Date: 20140725
  Transmission Date: 20150326
  Serious: Yes (Hospitalization, Other)
  Sender: FDA-Public Use
  Company Number: UNT-2014-001599

PATIENT
  Age: 83 Year
  Sex: Female
  Weight: 79.4 kg

DRUGS (4)
  1. TYVASO [Suspect]
     Active Substance: TREPROSTINIL
     Indication: PULMONARY ARTERIAL HYPERTENSION
     Route: 055
     Dates: start: 20131009
  2. ADEMPAS ( RIOCIGUAT) [Concomitant]
  3. REMODULIN [Suspect]
     Active Substance: TREPROSTINIL
     Indication: PULMONARY HYPERTENSION
     Dosage: 1.25 NG/KG/MIN
     Route: 041
  4. COUMADIN/00014802/ (WARFARIN SODIUM) [Concomitant]

REACTIONS (7)
  - Cardiac failure congestive [None]
  - Pleural effusion [None]
  - Pulmonary arterial hypertension [None]
  - Oedema peripheral [None]
  - Atrial fibrillation [None]
  - Chronic obstructive pulmonary disease [None]
  - Blood potassium decreased [None]
